FAERS Safety Report 8028208-7 (Version None)
Quarter: 2011Q4

REPORT INFORMATION
  Report Type: 
  Country: None (occurrence: None)
  Receive Date: 20111130
  Receipt Date: 20110627
  Transmission Date: 20120403
  Serious: Yes (Other)
  Sender: FDA-Public Use
  Company Number: US200910005434

PATIENT
  Age: 64 Year
  Sex: Female
  Weight: 136.1 kg

DRUGS (8)
  1. METFORMIN HCL [Concomitant]
  2. EXENATIDE UNK STRENGTH PEN, DISPOSABLE DEVICE (EXENATIDE PEN (UNKNOWN [Concomitant]
  3. LIPITOR (ATORVASTATNI CALCIUM) [Concomitant]
  4. TYLENOL /00020001/ (PARACETAMOL) [Concomitant]
  5. BYETTA [Suspect]
     Dosage: 10 UG, BID
     Dates: start: 20070701
  6. BYETTA [Suspect]
     Dosage: 10 UG, BID
     Dates: end: 20080820
  7. INSULIN [Concomitant]
  8. PIOGLITAZONE [Concomitant]

REACTIONS (6)
  - ABDOMINAL PAIN [None]
  - VOMITING [None]
  - NAUSEA [None]
  - OFF LABEL USE [None]
  - PANCREATITIS [None]
  - DIARRHOEA [None]
